FAERS Safety Report 18701168 (Version 7)
Quarter: 2022Q3

REPORT INFORMATION
  Report Type: Other
  Country: DE (occurrence: None)
  Receive Date: 20210105
  Receipt Date: 20220927
  Transmission Date: 20221027
  Serious: Yes (Other)
  Sender: FDA-Public Use
  Company Number: DE-ROCHE-2135208

PATIENT
  Age: 46 Year
  Sex: Female

DRUGS (18)
  1. OCREVUS [Suspect]
     Active Substance: OCRELIZUMAB
     Indication: Primary progressive multiple sclerosis
     Dosage: ACCORDING TO SPECIALIST INFORMATION
     Route: 042
     Dates: start: 20180517
  2. OCREVUS [Suspect]
     Active Substance: OCRELIZUMAB
     Route: 042
     Dates: start: 20190527
  3. OCREVUS [Suspect]
     Active Substance: OCRELIZUMAB
     Dosage: SEVENTH MAINTENANCE DOSE ON: 07/MAR/2022
     Route: 042
     Dates: start: 20191127
  4. COMIRNATY [Suspect]
     Active Substance: TOZINAMERAN
     Indication: COVID-19 immunisation
     Dosage: SECOND DOSE
     Route: 065
     Dates: start: 20210616, end: 20210616
  5. COMIRNATY [Suspect]
     Active Substance: TOZINAMERAN
     Dosage: FIRST DOSE
     Route: 065
     Dates: start: 20210505, end: 20210505
  6. COMIRNATY [Suspect]
     Active Substance: TOZINAMERAN
     Dosage: FOURTH DOSE ON 06/JAN/2022
     Route: 065
     Dates: start: 20210804, end: 20210804
  7. PANTOPRAZOLE [Concomitant]
     Active Substance: PANTOPRAZOLE
  8. PREGABALIN [Concomitant]
     Active Substance: PREGABALIN
  9. CHOLECALCIFEROL [Concomitant]
     Active Substance: CHOLECALCIFEROL
  10. TIZANIDINE HYDROCHLORIDE [Concomitant]
     Active Substance: TIZANIDINE HYDROCHLORIDE
  11. METAMIZOLE [Concomitant]
     Active Substance: METAMIZOLE
  12. MIRABEGRON [Concomitant]
     Active Substance: MIRABEGRON
  13. GABAPENTIN [Concomitant]
     Active Substance: GABAPENTIN
  14. BACLOFEN [Concomitant]
     Active Substance: BACLOFEN
  15. MIRABEGRON [Concomitant]
     Active Substance: MIRABEGRON
  16. BACLOFEN [Concomitant]
     Active Substance: BACLOFEN
     Dosage: (0-1-1-1)
  17. MAGNESIUM [Concomitant]
     Active Substance: MAGNESIUM
  18. DALFAMPRIDINE [Concomitant]
     Active Substance: DALFAMPRIDINE

REACTIONS (32)
  - Urinary tract infection bacterial [Recovered/Resolved]
  - Oropharyngeal pain [Recovered/Resolved]
  - Blood pressure increased [Recovered/Resolved]
  - Fatigue [Recovered/Resolved]
  - Back pain [Recovered/Resolved]
  - Neuralgia [Recovered/Resolved]
  - Abdominal pain upper [Recovered/Resolved]
  - Osteoarthritis [Recovering/Resolving]
  - Ligament rupture [Not Recovered/Not Resolved]
  - Mood swings [Recovering/Resolving]
  - Hypokinesia [Not Recovered/Not Resolved]
  - Paraesthesia [Not Recovered/Not Resolved]
  - Apathy [Recovering/Resolving]
  - Rotator cuff syndrome [Recovering/Resolving]
  - Muscle spasticity [Recovering/Resolving]
  - Middle insomnia [Not Recovered/Not Resolved]
  - Asthenia [Recovered/Resolved]
  - Chills [Recovered/Resolved]
  - Hyperhidrosis [Recovered/Resolved]
  - SARS-CoV-2 antibody test negative [Not Recovered/Not Resolved]
  - Headache [Recovered/Resolved]
  - Vision blurred [Recovered/Resolved]
  - Fatigue [Recovered/Resolved]
  - Arthralgia [Not Recovered/Not Resolved]
  - Pain in extremity [Recovered/Resolved]
  - Pain in extremity [Recovered/Resolved]
  - COVID-19 [Recovered/Resolved]
  - Cough [Recovered/Resolved]
  - Painful respiration [Recovered/Resolved]
  - Aphonia [Recovered/Resolved]
  - Nasopharyngitis [Recovered/Resolved]
  - Blood glucose increased [Not Recovered/Not Resolved]

NARRATIVE: CASE EVENT DATE: 20180517
